FAERS Safety Report 7305336-2 (Version None)
Quarter: 2011Q1

REPORT INFORMATION
  Report Type: 
  Country: None (occurrence: None)
  Receive Date: 20110222
  Receipt Date: 20110207
  Transmission Date: 20110831
  Serious: Yes (Hospitalization)
  Sender: FDA-Public Use
  Company Number: FR-CELGENEUS-056-21880-09061162

PATIENT
  Sex: Male
  Weight: 85 kg

DRUGS (10)
  1. ARANESP [Suspect]
     Route: 058
     Dates: end: 20090618
  2. DEXAMETHASONE [Concomitant]
     Indication: MULTIPLE MYELOMA
     Route: 065
     Dates: start: 20090315, end: 20090531
  3. ARANESP [Suspect]
     Route: 058
     Dates: start: 20090301
  4. GLUCOPHAGE [Concomitant]
     Route: 065
  5. EPOGEN [Concomitant]
     Route: 065
  6. REVLIMID [Suspect]
     Indication: MULTIPLE MYELOMA
     Route: 048
     Dates: start: 20090315, end: 20090525
  7. HYZAAR [Concomitant]
     Route: 065
  8. ARANESP [Suspect]
     Route: 058
     Dates: start: 20090201
  9. AMAREL [Concomitant]
     Route: 065
  10. CRESTOR [Concomitant]
     Route: 065

REACTIONS (2)
  - ANAEMIA [None]
  - APLASIA PURE RED CELL [None]
